FAERS Safety Report 5144049-2 (Version None)
Quarter: 2006Q4

REPORT INFORMATION
  Report Type: 
  Country: None (occurrence: None)
  Receive Date: 20061106
  Receipt Date: 20061031
  Transmission Date: 20070319
  Serious: Yes (Other)
  Sender: FDA-Public Use
  Company Number: US-JNJFOC-20061100070

PATIENT
  Sex: Female
  Weight: 22.68 kg

DRUGS (3)
  1. CHILDREN'S TYLENOL PLUS COUGH + SORE THROAT CHERRY [Suspect]
     Indication: PYREXIA
  2. CHILDREN'S TYLENOL PLUS COUGH + SORE THROAT CHERRY [Suspect]
     Indication: COUGH
  3. SUPPLEMENT [Concomitant]

REACTIONS (2)
  - HERPES SIMPLEX [None]
  - URTICARIA [None]
